FAERS Safety Report 4392696-8 (Version None)
Quarter: 2004Q3

REPORT INFORMATION
  Report Type: 
  Country: None (occurrence: None)
  Receive Date: 20040708
  Receipt Date: 20040628
  Transmission Date: 20050211
  Serious: Yes (Other)
  Sender: FDA-Public Use
  Company Number: PHBS2004RO08494

PATIENT
  Age: 18 Month
  Sex: Male
  Weight: 14 kg

DRUGS (1)
  1. ELIDEL [Suspect]
     Indication: DERMATITIS ATOPIC
     Dosage: UNK, BID
     Route: 061
     Dates: start: 20030101, end: 20030101

REACTIONS (1)
  - DERMATITIS EXFOLIATIVE [None]
